FAERS Safety Report 14081502 (Version 1)
Quarter: 2017Q4

REPORT INFORMATION
  Report Type: Spontaneous
  Country: US (occurrence: None)
  Receive Date: 20171012
  Receipt Date: 20171012
  Transmission Date: 20180321
  Serious: Yes (Hospitalization)
  Sender: FDA-Public Use
  Company Number: None

PATIENT
  Age: 45 Year
  Sex: Male

DRUGS (4)
  1. LISINOPRIL. [Concomitant]
     Active Substance: LISINOPRIL
  2. PAROXETINE. [Concomitant]
     Active Substance: PAROXETINE
  3. CYCLOBENZAPRINE. [Concomitant]
     Active Substance: CYCLOBENZAPRINE
  4. ACETAMINOPHEN. [Suspect]
     Active Substance: ACETAMINOPHEN
     Indication: PAIN
     Route: 048
     Dates: start: 20170904, end: 20170920

REACTIONS (10)
  - Haematochezia [None]
  - Alanine aminotransferase increased [None]
  - Vomiting [None]
  - Abdominal pain [None]
  - Aspartate aminotransferase increased [None]
  - Nausea [None]
  - Transaminases increased [None]
  - Respiratory symptom [None]
  - Intestinal mass [None]
  - Incorrect dose administered [None]

NARRATIVE: CASE EVENT DATE: 20170922
